FAERS Safety Report 24103646 (Version 1)
Quarter: 2024Q3

REPORT INFORMATION
  Report Type: Spontaneous
  Country: US (occurrence: US)
  Receive Date: 20240717
  Receipt Date: 20240717
  Transmission Date: 20241016
  Serious: No
  Sender: RANBAXY
  Company Number: US-SUN PHARMACEUTICAL INDUSTRIES LTD-2023R1-413814

PATIENT
  Sex: Male

DRUGS (2)
  1. YONSA [Suspect]
     Active Substance: ABIRATERONE ACETATE
     Indication: Prostate cancer
     Dosage: 4 TABLETS ONCE A DAY
     Route: 065
     Dates: start: 20230907
  2. YONSA [Suspect]
     Active Substance: ABIRATERONE ACETATE
     Dosage: 3 WHOLE AND 1 SLIGHTLY BROKEN TABLET
     Route: 065
     Dates: start: 2023

REACTIONS (2)
  - Poor quality product administered [Unknown]
  - Product physical issue [Unknown]
